FAERS Safety Report 8510486-9 (Version None)
Quarter: 2012Q3

REPORT INFORMATION
  Report Type: 
  Country: None (occurrence: None)
  Receive Date: 20120716
  Receipt Date: 20120628
  Transmission Date: 20120928
  Serious: Yes (Death)
  Sender: FDA-Public Use
  Company Number: US-009507513-2012SP036695

PATIENT

DRUGS (1)
  1. SAPHRIS [Suspect]
     Indication: SCHIZOAFFECTIVE DISORDER
     Dosage: 5 MG, UNKNOWN
     Route: 060
     Dates: start: 20111201

REACTIONS (2)
  - OFF LABEL USE [None]
  - BLOOD CALCIUM DECREASED [None]
